FAERS Safety Report 13339714 (Version 14)
Quarter: 2020Q4

REPORT INFORMATION
  Report Type: Spontaneous
  Country: US (occurrence: US)
  Receive Date: 20170315
  Receipt Date: 20201209
  Transmission Date: 20210113
  Serious: Yes (Other)
  Sender: FDA-Public Use
  Company Number: US-BIOMARINAP-US-2017-113104

PATIENT
  Age: 17 Year
  Sex: Female
  Weight: 38.1 kg

DRUGS (4)
  1. ALDURAZYME [Suspect]
     Active Substance: LARONIDASE
     Dosage: 0.61 MILLIGRAM/KILOGRAM, QW
     Route: 041
  2. ALDURAZYME [Suspect]
     Active Substance: LARONIDASE
     Indication: MUCOPOLYSACCHARIDOSIS
     Dosage: 0.61 MILLIGRAM/KILOGRAM, QW
     Route: 041
     Dates: start: 20161014
  3. ALDURAZYME [Suspect]
     Active Substance: LARONIDASE
     Dosage: 23.2 MILLIGRAM
     Route: 042
  4. BENADRYL [Concomitant]
     Active Substance: DIPHENHYDRAMINE HYDROCHLORIDE
     Indication: PREMEDICATION
     Dosage: 50 MG, UNK

REACTIONS (10)
  - Weight decreased [Unknown]
  - Malaise [Unknown]
  - Intervertebral disc operation [Unknown]
  - Chills [Unknown]
  - Illness [Unknown]
  - Weight increased [Unknown]
  - Exposure via breast milk [Unknown]
  - Therapy interrupted [Unknown]
  - Pyrexia [Unknown]
  - Exposure during pregnancy [Unknown]

NARRATIVE: CASE EVENT DATE: 20171023
